FAERS Safety Report 15757373 (Version 1)
Quarter: 2018Q4

REPORT INFORMATION
  Report Type: Spontaneous
  Country: US (occurrence: US)
  Receive Date: 20181224
  Receipt Date: 20181224
  Transmission Date: 20190205
  Serious: Yes (Death)
  Sender: FDA-Public Use
  Company Number: None

PATIENT
  Age: 63 Year
  Sex: Male
  Weight: 121.95 kg

DRUGS (10)
  1. GABAPENTIN. [Concomitant]
     Active Substance: GABAPENTIN
  2. MAGNESIUM [Concomitant]
     Active Substance: MAGNESIUM
  3. MEPRON [Concomitant]
     Active Substance: ATOVAQUONE
  4. FAMCICLOVIR. [Concomitant]
     Active Substance: FAMCICLOVIR
  5. ALLOPURINOL. [Concomitant]
     Active Substance: ALLOPURINOL
  6. CALCIUM [Concomitant]
     Active Substance: CALCIUM
  7. PREDNISONE. [Concomitant]
     Active Substance: PREDNISONE
  8. ARANESP [Suspect]
     Active Substance: DARBEPOETIN ALFA
     Dates: start: 20170727
  9. ALPRAZOLAM. [Concomitant]
     Active Substance: ALPRAZOLAM
  10. MERCAPTOPURINE. [Concomitant]
     Active Substance: MERCAPTOPURINE

REACTIONS (1)
  - Disease progression [None]
